FAERS Safety Report 5692085-X (Version None)
Quarter: 2008Q1

REPORT INFORMATION
  Report Type: 
  Country: None (occurrence: None)
  Receive Date: 20080331
  Receipt Date: 20080327
  Transmission Date: 20080703
  Serious: Yes (Death, Hospitalization)
  Sender: FDA-Public Use
  Company Number: 2008SP003256

PATIENT
  Age: 50 Year
  Sex: Male
  Weight: 79.8 kg

DRUGS (3)
  1. PEG-INTRON [Suspect]
     Indication: HEPATITIS C
     Dosage: 100 MCG; QW; SC
     Route: 058
     Dates: start: 20070710, end: 20070924
  2. RIBAVIRIN [Suspect]
     Indication: HEPATITIS C
     Dosage: 1250 MG; QD; PO, 750 MG; QD; PO
     Route: 048
     Dates: start: 20070710, end: 20070820
  3. RIBAVIRIN [Suspect]
     Indication: HEPATITIS C
     Dosage: 1250 MG; QD; PO, 750 MG; QD; PO
     Route: 048
     Dates: start: 20070821, end: 20070924

REACTIONS (8)
  - ABDOMINAL PAIN [None]
  - ANAEMIA [None]
  - CARDIOPULMONARY FAILURE [None]
  - HEPATIC ENCEPHALOPATHY [None]
  - HYPOTENSION [None]
  - JAUNDICE [None]
  - LEUKOPENIA [None]
  - RENAL FAILURE ACUTE [None]
